FAERS Safety Report 5807528-8 (Version None)
Quarter: 2008Q3

REPORT INFORMATION
  Report Type: 
  Country: None (occurrence: None)
  Receive Date: 20080711
  Receipt Date: 20071219
  Transmission Date: 20090109
  Serious: Yes (Hospitalization)
  Sender: FDA-Public Use
  Company Number: US-ROCHE-537752

PATIENT
  Age: 45 Year
  Sex: Female

DRUGS (6)
  1. RIBAVIRIN [Suspect]
     Route: 065
  2. RIBAVIRIN [Suspect]
     Route: 065
  3. INTRON A [Suspect]
     Route: 058
  4. INTRON A [Suspect]
     Route: 058
  5. INTRON A [Suspect]
     Route: 058
  6. PAROXETINE HCL [Concomitant]

REACTIONS (3)
  - DIARRHOEA [None]
  - FATIGUE [None]
  - PANCREATITIS ACUTE [None]
